FAERS Safety Report 8147910 (Version 3)
Quarter: 2017Q2

REPORT INFORMATION
  Report Type: Spontaneous
  Country: US (occurrence: US)
  Receive Date: 20110922
  Receipt Date: 20170620
  Transmission Date: 20170830
  Serious: Yes (Life-Threatening, Hospitalization, Other)
  Sender: FDA-Public Use
  Company Number: US-ASTRAZENECA-2011SE03547

PATIENT
  Age: 35 Year
  Sex: Female
  Weight: 63.5 kg

DRUGS (8)
  1. SEROQUEL XR [Suspect]
     Active Substance: QUETIAPINE FUMARATE
     Indication: SCHIZOPHRENIA
     Route: 048
  2. WELLBUTRIN [Concomitant]
     Active Substance: BUPROPION HYDROCHLORIDE
     Indication: ANXIETY
  3. PULMICORT FLEXHALER [Suspect]
     Active Substance: BUDESONIDE
     Dosage: 1 PUFF IN THE MORNING AND 1 PUFF IN THE EVENING
     Route: 055
  4. LITHIUM. [Concomitant]
     Active Substance: LITHIUM
     Indication: MOOD SWINGS
     Dosage: 900.0MG UNKNOWN
  5. BABY ASPIRIN [Concomitant]
     Active Substance: ASPIRIN
     Route: 048
  6. CHLOR CON [Concomitant]
     Route: 048
  7. SEROQUEL XR [Suspect]
     Active Substance: QUETIAPINE FUMARATE
     Indication: SCHIZOPHRENIA
     Route: 048
     Dates: start: 2007
  8. NARVASC [Concomitant]
     Route: 048

REACTIONS (12)
  - Body height decreased [Unknown]
  - Somnolence [Unknown]
  - Vomiting [Not Recovered/Not Resolved]
  - Weight increased [Not Recovered/Not Resolved]
  - Dyslexia [Unknown]
  - Influenza [Unknown]
  - Tremor [Not Recovered/Not Resolved]
  - Mouth swelling [Unknown]
  - Drug dose omission [Unknown]
  - Dizziness [Not Recovered/Not Resolved]
  - Asthma [Unknown]
  - Apparent death [Unknown]

NARRATIVE: CASE EVENT DATE: 2007
